FAERS Safety Report 9705570 (Version 2)
Quarter: 2013Q4

REPORT INFORMATION
  Report Type: Spontaneous
  Country: US (occurrence: US)
  Receive Date: 20131122
  Receipt Date: 20131122
  Transmission Date: 20140711
  Serious: No
  Sender: FDA-Public Use
  Company Number: US-GILEAD-2008-0016957

PATIENT
  Sex: Female
  Weight: 77.11 kg

DRUGS (7)
  1. LETAIRIS [Suspect]
     Indication: PULMONARY ARTERIAL HYPERTENSION
     Route: 048
     Dates: start: 20071102
  2. METOCLOPRAMIDE [Concomitant]
     Route: 048
  3. EFFEXOR [Concomitant]
     Dosage: AS DIRECTED
     Route: 048
  4. COUMADIN [Concomitant]
     Route: 048
  5. DIOVAN [Concomitant]
     Dosage: AS DIRECTED
     Route: 048
  6. ALLEGRA-D [Concomitant]
     Dosage: AS DIRECTED
     Route: 048
  7. CALCIUM [Concomitant]
     Route: 048

REACTIONS (2)
  - Abdominal distension [Unknown]
  - Abdominal pain upper [Unknown]
